FAERS Safety Report 17439548 (Version 1)
Quarter: 2020Q1

REPORT INFORMATION
  Report Type: Spontaneous
  Country: US (occurrence: US)
  Receive Date: 20200220
  Receipt Date: 20200220
  Transmission Date: 20200409
  Serious: No
  Sender: FDA-Public Use
  Company Number: US-TEVA-2020-US-1186515

PATIENT
  Sex: Female

DRUGS (1)
  1. TEVA CLONAZEPAM [Suspect]
     Active Substance: CLONAZEPAM
     Route: 065

REACTIONS (5)
  - Drug ineffective [Unknown]
  - Nightmare [Unknown]
  - Insomnia [Unknown]
  - Product substitution issue [Unknown]
  - Headache [Unknown]
